FAERS Safety Report 5711125-2 (Version None)
Quarter: 2008Q2

REPORT INFORMATION
  Report Type: 
  Country: None (occurrence: None)
  Receive Date: 20080417
  Receipt Date: 20080417
  Transmission Date: 20081010
  Serious: Yes (Hospitalization)
  Sender: FDA-Public Use
  Company Number: None

PATIENT
  Sex: Female

DRUGS (4)
  1. ZETIA [Suspect]
     Indication: BLOOD CHOLESTEROL INCREASED
     Dosage: 10MG DAILY PO
     Route: 048
     Dates: start: 20030901, end: 20060401
  2. TOPORAL [Concomitant]
  3. LISINOPRIL AND HYDROCHLOROTHIAZIDE [Concomitant]
  4. HUMALOG [Concomitant]

REACTIONS (8)
  - ARTERIAL STENOSIS [None]
  - ARTHRALGIA [None]
  - DRUG INEFFECTIVE [None]
  - GAIT DISTURBANCE [None]
  - INFLUENZA LIKE ILLNESS [None]
  - MUSCLE DISORDER [None]
  - PAIN IN EXTREMITY [None]
  - THERAPEUTIC RESPONSE UNEXPECTED [None]
